FAERS Safety Report 13059348 (Version 1)
Quarter: 2016Q4

REPORT INFORMATION
  Report Type: Spontaneous
  Country: IT (occurrence: IT)
  Receive Date: 20161223
  Receipt Date: 20161223
  Transmission Date: 20170207
  Serious: Yes (Other)
  Sender: FDA-Public Use
  Company Number: IT-MYLANLABS-2016M1056794

PATIENT

DRUGS (5)
  1. FLUDARABINE [Suspect]
     Active Substance: FLUDARABINE PHOSPHATE
     Indication: MYELOFIBROSIS
     Dosage: 30 MG/M2 PER DAY FOR 6 DAYS PRIOR TO THE TRANSPLANTATION
     Route: 065
  2. CICLOSPORIN [Concomitant]
     Active Substance: CYCLOSPORINE
     Indication: PRODUCT USED FOR UNKNOWN INDICATION
     Route: 065
  3. THIOTEPA. [Suspect]
     Active Substance: THIOTEPA
     Indication: MYELOFIBROSIS
     Dosage: 5 MG/KG EVERY 12 HOURS FOR TWO DOSES
     Route: 065
  4. ANTITHYMOCYTE IMMUNOGLOBULIN [Concomitant]
     Active Substance: THYMOCYTE IMMUNE GLOBULIN NOS
     Indication: PRODUCT USED FOR UNKNOWN INDICATION
     Dosage: 2.5 MG/KG PER DAY ON DAY 3 AND DAY 2 BEFORE THE TRANSPLANT
     Route: 065
  5. METHOTREXATE. [Concomitant]
     Active Substance: METHOTREXATE
     Indication: PROPHYLAXIS AGAINST GRAFT VERSUS HOST DISEASE
     Route: 065

REACTIONS (6)
  - Blindness [Unknown]
  - Delirium [Unknown]
  - Neurotoxicity [Unknown]
  - Paraplegia [Unknown]
  - Confusional state [Unknown]
  - Loss of proprioception [Unknown]
